FAERS Safety Report 7319248-1 (Version None)
Quarter: 2011Q1

REPORT INFORMATION
  Report Type: 
  Country: None (occurrence: None)
  Receive Date: 20110228
  Receipt Date: 20110223
  Transmission Date: 20110831
  Serious: Yes (Death, Hospitalization, Other)
  Sender: FDA-Public Use
  Company Number: PHHY2011US07670

PATIENT
  Sex: Female
  Weight: 67 kg

DRUGS (1)
  1. EXJADE [Suspect]
     Indication: IRON METABOLISM DISORDER
     Dosage: 1625 MG, QD
     Route: 048
     Dates: start: 20100721, end: 20110101

REACTIONS (5)
  - SEPSIS [None]
  - ARTHRALGIA [None]
  - JOINT SWELLING [None]
  - LETHARGY [None]
  - PYREXIA [None]
